FAERS Safety Report 17315623 (Version 2)
Quarter: 2020Q1

REPORT INFORMATION
  Report Type: Spontaneous
  Country: US (occurrence: US)
  Receive Date: 20200124
  Receipt Date: 20200214
  Transmission Date: 20200409
  Serious: No
  Sender: FDA-Public Use
  Company Number: US-VERTEX PHARMACEUTICALS-2020-001009

PATIENT
  Age: 44 Year
  Sex: Male

DRUGS (10)
  1. HYPERTONIC SALINE SOLUTION [Concomitant]
     Active Substance: SODIUM CHLORIDE
  2. COLISTIN [Concomitant]
     Active Substance: COLISTIN
  3. BUDESONIDE. [Concomitant]
     Active Substance: BUDESONIDE
  4. PULMOZYME [Concomitant]
     Active Substance: DORNASE ALFA
  5. ZENPEP [Concomitant]
     Active Substance: PANCRELIPASE AMYLASE\PANCRELIPASE LIPASE\PANCRELIPASE PROTEASE
  6. CAYSTON [Concomitant]
     Active Substance: AZTREONAM
  7. TOBRAMYCIN. [Concomitant]
     Active Substance: TOBRAMYCIN
  8. FLONASE [MOMETASONE FUROATE] [Concomitant]
     Active Substance: MOMETASONE FUROATE
  9. AZITHROMYCIN ANHYDROUS. [Concomitant]
     Active Substance: AZITHROMYCIN ANHYDROUS
  10. TRIKAFTA [Suspect]
     Active Substance: ELEXACAFTOR\IVACAFTOR\TEZACAFTOR
     Indication: CYSTIC FIBROSIS
     Dosage: 2 TABS (100MG ELEXACAFTOR/50MG TEZACAFTOR/75MG IVACAFTOR) AM; 1 TAB (150MG IVACAFTOR) PM
     Route: 048
     Dates: start: 20191003

REACTIONS (1)
  - Testicular pain [Recovered/Resolved]

NARRATIVE: CASE EVENT DATE: 20191007
